FAERS Safety Report 10179170 (Version 3)
Quarter: 2014Q2

REPORT INFORMATION
  Report Type: Report from Study
  Country: US (occurrence: US)
  Receive Date: 20140519
  Receipt Date: 20140611
  Transmission Date: 20141212
  Serious: Yes (Other)
  Sender: FDA-Public Use
  Company Number: US-MYLANLABS-2014S1010996

PATIENT
  Age: 13 Year
  Sex: Female

DRUGS (2)
  1. AMNESTEEM CAPSULES [Suspect]
     Indication: ACNE
     Route: 048
     Dates: start: 20140408, end: 20140512
  2. AMNESTEEM CAPSULES [Suspect]
     Indication: ACNE
     Route: 048

REACTIONS (2)
  - Suicidal ideation [Recovered/Resolved]
  - Depression [Not Recovered/Not Resolved]
